FAERS Safety Report 6467384-4 (Version None)
Quarter: 2009Q4

REPORT INFORMATION
  Report Type: 
  Country: None (occurrence: None)
  Receive Date: 20091202
  Receipt Date: 20091123
  Transmission Date: 20100525
  Serious: Yes (Other)
  Sender: FDA-Public Use
  Company Number: A0826881A

PATIENT
  Sex: Male

DRUGS (1)
  1. AMOXIL [Suspect]
     Indication: TONSILLITIS
     Dosage: 5ML TWICE PER DAY
     Route: 048
     Dates: start: 20091113

REACTIONS (4)
  - ANAEMIA [None]
  - ANGIOEDEMA [None]
  - LEUKOPENIA [None]
  - PYREXIA [None]
